FAERS Safety Report 8776267 (Version 1)
Quarter: 2012Q4

REPORT INFORMATION
  Report Type: 
  Country: US (occurrence: US)
  Receive Date: 20120910
  Receipt Date: 20120910
  Transmission Date: 20130627
  Serious: No
  Sender: FDA-Public Use
  Company Number: US-009507513-1209USA002815

PATIENT

DRUGS (2)
  1. MIRALAX [Suspect]
     Indication: CONSTIPATION
     Dosage: 17 g, qd
     Route: 048
     Dates: start: 2012
  2. MIRALAX [Suspect]
     Indication: MEDICAL OBSERVATION
     Dosage: 17 g, bid
     Route: 048
     Dates: start: 2012

REACTIONS (4)
  - Abdominal distension [Unknown]
  - Flatulence [Unknown]
  - Overdose [Unknown]
  - Incorrect drug administration duration [Unknown]
